FAERS Safety Report 11704739 (Version 1)
Quarter: 2015Q4

REPORT INFORMATION
  Report Type: Spontaneous
  Country: GB (occurrence: GB)
  Receive Date: 20151106
  Receipt Date: 20151106
  Transmission Date: 20160304
  Serious: Yes (Other)
  Sender: FDA-Public Use
  Company Number: GB-HORIZON-PRE-0189-2015

PATIENT
  Age: 59 Year
  Sex: Female
  Weight: 76.1 kg

DRUGS (1)
  1. PREDNISONE. [Suspect]
     Active Substance: PREDNISONE
     Indication: BRONCHITIS
     Dosage: 1 DF DAILY
     Route: 048
     Dates: start: 20151014, end: 20151015

REACTIONS (6)
  - Lip swelling [Recovering/Resolving]
  - Swelling face [Recovering/Resolving]
  - Paraesthesia [Unknown]
  - Paraesthesia oral [Recovering/Resolving]
  - Vomiting [Recovering/Resolving]
  - Insomnia [Recovering/Resolving]

NARRATIVE: CASE EVENT DATE: 20151014
